FAERS Safety Report 11622554 (Version 1)
Quarter: 2015Q4

REPORT INFORMATION
  Report Type: Spontaneous
  Country: US (occurrence: US)
  Receive Date: 20151013
  Receipt Date: 20151013
  Transmission Date: 20160304
  Serious: No
  Sender: FDA-Public Use
  Company Number: US-JNJFOC-20131209976

PATIENT
  Age: 83 Year
  Sex: Female
  Weight: 60.78 kg

DRUGS (2)
  1. TYLENOL REGULAR STRENGTH [Suspect]
     Active Substance: ACETAMINOPHEN
     Route: 048
  2. TYLENOL REGULAR STRENGTH [Suspect]
     Active Substance: ACETAMINOPHEN
     Indication: ARTHRALGIA
     Dosage: DOSAGE: 1 TABLET
     Route: 048
     Dates: start: 20131212

REACTIONS (2)
  - Product packaging issue [Unknown]
  - Choking sensation [Recovered/Resolved]

NARRATIVE: CASE EVENT DATE: 20131212
